FAERS Safety Report 14670654 (Version 1)
Quarter: 2018Q1

REPORT INFORMATION
  Report Type: Spontaneous
  Country: US (occurrence: US)
  Receive Date: 20180322
  Receipt Date: 20180322
  Transmission Date: 20180509
  Serious: No
  Sender: FDA-Public Use
  Company Number: US-MYLANLABS-2018M1018989

PATIENT
  Age: 27 Year
  Sex: Female
  Weight: 52 kg

DRUGS (2)
  1. EPINEPHRINE INJECTION USP AUTO-INJECTOR [Suspect]
     Active Substance: EPINEPHRINE
     Indication: FOOD ALLERGY
     Dosage: 0.3 MG, UNK
     Route: 030
  2. BENADRYL [Concomitant]
     Active Substance: DIPHENHYDRAMINE HYDROCHLORIDE
     Indication: PRODUCT USED FOR UNKNOWN INDICATION

REACTIONS (3)
  - No adverse event [Unknown]
  - Drug dose omission [Unknown]
  - Device failure [Recovered/Resolved]

NARRATIVE: CASE EVENT DATE: 20180316
